FAERS Safety Report 4505218-5 (Version None)
Quarter: 2004Q4

REPORT INFORMATION
  Report Type: 
  Country: None (occurrence: None)
  Receive Date: 20041118
  Receipt Date: 20041118
  Transmission Date: 20050328
  Serious: Yes (Hospitalization, Other)
  Sender: FDA-Public Use
  Company Number: None

PATIENT
  Age: 44 Year
  Sex: Female
  Weight: 108.8633 kg

DRUGS (2)
  1. NARDIL [Suspect]
     Indication: DEPRESSION
     Dosage: 45 MG/DAY PO
     Route: 048
     Dates: start: 19950101, end: 20030101
  2. NARDIL [Suspect]
     Indication: POST-TRAUMATIC STRESS DISORDER
     Dosage: 45 MG/DAY PO
     Route: 048
     Dates: start: 19950101, end: 20030101

REACTIONS (4)
  - DEPRESSION [None]
  - DRUG EFFECT DECREASED [None]
  - PHARMACEUTICAL PRODUCT COMPLAINT [None]
  - SUICIDE ATTEMPT [None]
